FAERS Safety Report 8610869-2 (Version None)
Quarter: 2012Q3

REPORT INFORMATION
  Report Type: 
  Country: None (occurrence: None)
  Receive Date: 20120808
  Receipt Date: 20120724
  Transmission Date: 20120928
  Serious: Yes (Hospitalization)
  Sender: FDA-Public Use
  Company Number: FK201202171

PATIENT
  Age: 52 Year
  Sex: Male

DRUGS (4)
  1. CLOFARABINE [Suspect]
     Indication: ACUTE MYELOID LEUKAEMIA
     Dosage: 22.5 MG/M2
  2. IDARUBICIN HYDROCHLORIDE [Suspect]
     Indication: ACUTE MYELOID LEUKAEMIA
     Dosage: 6 MG/M2, 400 UG, INTRAVENOUS, EVERY TWO MONTHS
     Route: 042
  3. CYTARABINE [Suspect]
     Indication: ACUTE MYELOID LEUKAEMIA
     Dosage: 0.75 MG/M2
  4. METHYLPREDNISOLONE [Suspect]
     Indication: ACUTE MYELOID LEUKAEMIA

REACTIONS (6)
  - CHEST PAIN [None]
  - NEUTROPENIA [None]
  - HAEMOPTYSIS [None]
  - SWELLING [None]
  - ZYGOMYCOSIS [None]
  - NECK PAIN [None]
